FAERS Safety Report 5092578-2 (Version None)
Quarter: 2006Q3

REPORT INFORMATION
  Report Type: 
  Country: None (occurrence: None)
  Receive Date: 20060828
  Receipt Date: 20060828
  Transmission Date: 20061208
  Serious: Yes (Disabling)
  Sender: FDA-Public Use
  Company Number: None

PATIENT
  Age: 44 Year
  Sex: Female
  Weight: 83.9154 kg

DRUGS (3)
  1. ASPIRIN [Suspect]
     Indication: CARDIAC DISORDER
     Dosage: 2 AS NEEDED PO
     Route: 048
     Dates: start: 20060701, end: 20060821
  2. ASPIRIN [Suspect]
     Indication: HEADACHE
     Dosage: 2 AS NEEDED PO
     Route: 048
     Dates: start: 20060701, end: 20060821
  3. ASPIRIN [Suspect]
     Indication: PROPHYLAXIS
     Dosage: 2 AS NEEDED PO
     Route: 048
     Dates: start: 20060701, end: 20060821

REACTIONS (4)
  - ABDOMINAL PAIN UPPER [None]
  - NAUSEA [None]
  - PAIN [None]
  - PHARMACEUTICAL PRODUCT COMPLAINT [None]
